FAERS Safety Report 23595891 (Version 2)
Quarter: 2024Q1

REPORT INFORMATION
  Report Type: Spontaneous
  Country: FR (occurrence: FR)
  Receive Date: 20240305
  Receipt Date: 20240318
  Transmission Date: 20240409
  Serious: Yes (Other)
  Sender: FDA-Public Use
  Company Number: FR-SANDOZ-SDZ2024FR021385

PATIENT
  Age: 28 Year
  Sex: Female

DRUGS (13)
  1. SUCCINYLCHOLINE [Suspect]
     Active Substance: SUCCINYLCHOLINE
     Indication: Electroconvulsive therapy
     Dosage: 60 MG
     Route: 065
     Dates: start: 20240124, end: 20240124
  2. SUCCINYLCHOLINE [Suspect]
     Active Substance: SUCCINYLCHOLINE
     Dosage: 60 MG
     Route: 065
     Dates: start: 20240126, end: 20240126
  3. SUCCINYLCHOLINE [Suspect]
     Active Substance: SUCCINYLCHOLINE
     Dosage: 60 MG
     Route: 065
     Dates: start: 20240129, end: 20240129
  4. SUCCINYLCHOLINE [Suspect]
     Active Substance: SUCCINYLCHOLINE
     Dosage: 60 MG
     Route: 065
     Dates: start: 20240202, end: 20240202
  5. CHLORPROMAZINE [Suspect]
     Active Substance: CHLORPROMAZINE
     Indication: Acute psychosis
     Dosage: 450 MG, QD
     Route: 048
     Dates: start: 20240119, end: 20240206
  6. CHLORPROMAZINE [Suspect]
     Active Substance: CHLORPROMAZINE
     Dosage: 450 MG, QD
     Route: 048
     Dates: start: 202401, end: 20240206
  7. POLYETHYLENE GLYCOL 4000 [Suspect]
     Active Substance: POLYETHYLENE GLYCOL 4000
     Indication: Electroconvulsive therapy
     Dosage: 2 DF, Q12H
     Route: 048
     Dates: start: 20240124, end: 20240206
  8. OLANZAPINE [Suspect]
     Active Substance: OLANZAPINE
     Dosage: 30 MG, QD
     Route: 048
     Dates: start: 20240121, end: 20240206
  9. OLANZAPINE [Suspect]
     Active Substance: OLANZAPINE
     Indication: Acute psychosis
     Dosage: UNK
     Route: 048
     Dates: start: 20240119, end: 20240121
  10. DIPRIVAN [Concomitant]
     Active Substance: ISOPROPYL ALCOHOL\PROPOFOL
     Indication: Electroconvulsive therapy
     Dosage: 100 MG
     Route: 065
     Dates: start: 20240126, end: 20240126
  11. DIPRIVAN [Concomitant]
     Active Substance: ISOPROPYL ALCOHOL\PROPOFOL
     Dosage: 60 MG
     Route: 065
     Dates: start: 20240124, end: 20240124
  12. PROPOFOL [Concomitant]
     Active Substance: PROPOFOL
     Dosage: 100 MG
     Route: 065
     Dates: start: 20240202, end: 20240202
  13. PROPOFOL [Concomitant]
     Active Substance: PROPOFOL
     Indication: Electroconvulsive therapy
     Dosage: 50 MG
     Route: 065
     Dates: start: 20240129, end: 20240129

REACTIONS (2)
  - Toxic skin eruption [Not Recovered/Not Resolved]
  - Product use in unapproved indication [Unknown]

NARRATIVE: CASE EVENT DATE: 20240125
